FAERS Safety Report 10514312 (Version 1)
Quarter: 2014Q4

REPORT INFORMATION
  Report Type: Spontaneous
  Country: US (occurrence: US)
  Receive Date: 20141013
  Receipt Date: 20141013
  Transmission Date: 20150528
  Serious: Yes (Other)
  Sender: FDA-Public Use
  Company Number: US-BRISTOL-MYERS SQUIBB COMPANY-21458575

PATIENT
  Age: 83 Year
  Sex: Female
  Weight: 72.56 kg

DRUGS (11)
  1. TIKOSYN [Concomitant]
     Active Substance: DOFETILIDE
  2. VITAMIN D [Concomitant]
     Active Substance: CHOLECALCIFEROL
  3. METOPROLOL [Concomitant]
     Active Substance: METOPROLOL
  4. MULTIVITAMIN [Concomitant]
     Active Substance: VITAMINS
  5. HEPARIN [Suspect]
     Active Substance: HEPARIN SODIUM
  6. ALEVE [Suspect]
     Active Substance: NAPROXEN SODIUM
  7. COQ10 [Concomitant]
     Active Substance: UBIDECARENONE
  8. DOXYCYCLINE. [Concomitant]
     Active Substance: DOXYCYCLINE
  9. ELIQUIS [Suspect]
     Active Substance: APIXABAN
  10. SIMVASTATIN. [Concomitant]
     Active Substance: SIMVASTATIN
  11. CHONDROITIN [Concomitant]
     Active Substance: CHONDROITIN

REACTIONS (4)
  - Rash [Recovering/Resolving]
  - Drug interaction [Unknown]
  - Haemorrhage [Unknown]
  - Lyme disease [Unknown]
